FAERS Safety Report 19668838 (Version 2)
Quarter: 2021Q3

REPORT INFORMATION
  Report Type: Spontaneous
  Country: US (occurrence: US)
  Receive Date: 20210806
  Receipt Date: 20210923
  Transmission Date: 20211014
  Serious: Yes (Other)
  Sender: FDA-Public Use
  Company Number: US-ASTRAZENECA-2021A653702

PATIENT
  Age: 17934 Day
  Sex: Male

DRUGS (6)
  1. PROAIR HFA [Concomitant]
     Active Substance: ALBUTEROL SULFATE
  2. CLARATIN [Concomitant]
  3. FASENRA [Suspect]
     Active Substance: BENRALIZUMAB
     Route: 058
     Dates: end: 20210426
  4. DUPIXENT [Concomitant]
     Active Substance: DUPILUMAB
  5. ADVAIR HFA [Concomitant]
     Active Substance: FLUTICASONE PROPIONATE\SALMETEROL XINAFOATE
  6. MONTELUKAST [Concomitant]
     Active Substance: MONTELUKAST SODIUM

REACTIONS (4)
  - Rash [Unknown]
  - Urticaria [Unknown]
  - Asthma [Unknown]
  - Bed bug infestation [Recovered/Resolved]

NARRATIVE: CASE EVENT DATE: 20210415
